FAERS Safety Report 5518950-1 (Version None)
Quarter: 2007Q4

REPORT INFORMATION
  Report Type: 
  Country: None (occurrence: None)
  Receive Date: 20071114
  Receipt Date: 20071114
  Transmission Date: 20080405
  Serious: Yes (Disabling)
  Sender: FDA-Public Use
  Company Number: None

PATIENT
  Age: 67 Year
  Sex: Female
  Weight: 68.9467 kg

DRUGS (2)
  1. AMBIEN CR [Suspect]
     Indication: INITIAL INSOMNIA
     Dosage: ONE TABLET AT BEDTIME  AS NEEDED
     Dates: start: 20070523, end: 20070906
  2. AMBIEN CR [Suspect]
     Indication: INSOMNIA
     Dosage: ONE TABLET AT BEDTIME  AS NEEDED
     Dates: start: 20070523, end: 20070906

REACTIONS (3)
  - DYSPNOEA [None]
  - PALPITATIONS [None]
  - PULMONARY HYPERTENSION [None]
